FAERS Safety Report 25990296 (Version 1)
Quarter: 2025Q4

REPORT INFORMATION
  Report Type: Spontaneous
  Country: CA (occurrence: CA)
  Receive Date: 20251103
  Receipt Date: 20251103
  Transmission Date: 20260118
  Serious: Yes (Hospitalization, Other)
  Sender: PFIZER
  Company Number: CA-PFIZER INC-202500213691

PATIENT
  Age: 68 Year
  Sex: Female

DRUGS (4)
  1. RUXIENCE [Suspect]
     Active Substance: RITUXIMAB-PVVR
     Indication: Neuromyelitis optica spectrum disorder
     Dosage: 1000 MG,EVERY 6 MONTH
     Route: 042
     Dates: start: 20250604
  2. CELLCEPT [Concomitant]
     Active Substance: MYCOPHENOLATE MOFETIL
     Dosage: UNK
  3. PREDNISONE [Concomitant]
     Active Substance: PREDNISONE
     Dosage: UNK
  4. SYNTHROID [Concomitant]
     Active Substance: LEVOTHYROXINE SODIUM
     Dosage: UNK

REACTIONS (3)
  - Thrombosis [Unknown]
  - Confusional state [Unknown]
  - Fatigue [Unknown]

NARRATIVE: CASE EVENT DATE: 20250101
